FAERS Safety Report 25016484 (Version 2)
Quarter: 2025Q1

REPORT INFORMATION
  Report Type: Spontaneous
  Country: EC (occurrence: EC)
  Receive Date: 20250227
  Receipt Date: 20250302
  Transmission Date: 20250408
  Serious: Yes (Disabling)
  Sender: ROCHE
  Company Number: EC-ROCHE-10000217969

PATIENT
  Age: 5 Year
  Sex: Female

DRUGS (1)
  1. EVRYSDI [Suspect]
     Active Substance: RISDIPLAM
     Indication: Spinal muscular atrophy
     Dosage: ONGOING.?PRESENTATION: POWDER FOR ORAL SOLUTION
     Route: 048

REACTIONS (1)
  - Muscular weakness [Unknown]
